FAERS Safety Report 7754025-9 (Version None)
Quarter: 2011Q3

REPORT INFORMATION
  Report Type: 
  Country: None (occurrence: None)
  Receive Date: 20110915
  Receipt Date: 20110914
  Transmission Date: 20111222
  Serious: Yes (Death, Hospitalization)
  Sender: FDA-Public Use
  Company Number: PHHY2010JP77872

PATIENT
  Sex: Male
  Weight: 54 kg

DRUGS (9)
  1. GASMOTIN [Concomitant]
     Dosage: 10 MG, UNK
     Route: 048
     Dates: start: 20100524, end: 20100101
  2. DIFLUCAN [Concomitant]
     Indication: PROPHYLAXIS
     Dosage: 100 MG, UNK
     Route: 048
     Dates: start: 20100524, end: 20100101
  3. ZOLPIDEM [Concomitant]
     Dosage: 2.5 MG, UNK
     Route: 048
     Dates: start: 20100524, end: 20100101
  4. EXJADE [Suspect]
     Indication: MYELODYSPLASTIC SYNDROME
     Dosage: 500 MG, DAILY
     Route: 048
     Dates: start: 20100521, end: 20100608
  5. RED BLOOD CELLS, CONCENTRATED [Concomitant]
     Dosage: 2 U, 1-2 TIMES A WEEK
     Dates: end: 20100604
  6. LEVOFLOXACIN [Concomitant]
     Indication: PROPHYLAXIS
     Dosage: 250 MG, UNK
     Route: 048
     Dates: start: 20100524, end: 20100101
  7. DESFERAL [Concomitant]
     Indication: IRON OVERLOAD
     Dosage: 500 MG, UNK
     Route: 042
     Dates: start: 20100524, end: 20100608
  8. SULFAMETHOXAZOLE [Concomitant]
     Indication: PROPHYLAXIS
     Dosage: 1 DF, UNK
     Route: 048
     Dates: start: 20100524, end: 20100101
  9. BETAMETHASONE [Concomitant]
     Indication: MYELODYSPLASTIC SYNDROME
     Dosage: 0.25 MG, UNK
     Route: 048
     Dates: start: 20100524, end: 20100101

REACTIONS (2)
  - SUBILEUS [None]
  - BRONCHOPULMONARY ASPERGILLOSIS [None]
